FAERS Safety Report 5159872-8 (Version None)
Quarter: 2006Q4

REPORT INFORMATION
  Report Type: 
  Country: None (occurrence: None)
  Receive Date: 20061129
  Receipt Date: 20060322
  Transmission Date: 20070319
  Serious: No
  Sender: FDA-Public Use
  Company Number: US-GLAXOSMITHKLINE-A0598619A

PATIENT
  Age: 53 Year
  Sex: Female

DRUGS (2)
  1. WELLBUTRIN SR [Suspect]
     Indication: DEPRESSION
     Dosage: 150MG PER DAY
     Route: 048
     Dates: start: 20060322
  2. NO CONCURRENT MEDICATION [Concomitant]

REACTIONS (3)
  - DIZZINESS [None]
  - EXPIRED DRUG ADMINISTERED [None]
  - VISION BLURRED [None]
